FAERS Safety Report 11363604 (Version 1)
Quarter: 2015Q3

REPORT INFORMATION
  Report Type: Report from Study
  Country: VE (occurrence: VE)
  Receive Date: 20150811
  Receipt Date: 20150811
  Transmission Date: 20151125
  Serious: Yes (Hospitalization, Disabling)
  Sender: FDA-Public Use
  Company Number: PHHY2014VE144499

PATIENT
  Age: 43 Year
  Sex: Female

DRUGS (3)
  1. TASIGNA [Suspect]
     Active Substance: NILOTINIB
     Dosage: 400 MG, QD
     Route: 065
  2. PROFENID [Concomitant]
     Active Substance: KETOPROFEN
     Indication: PAIN
     Dosage: 150 MG, QD
     Route: 065
  3. TASIGNA [Suspect]
     Active Substance: NILOTINIB
     Indication: CHRONIC MYELOID LEUKAEMIA
     Dosage: 800 MG, QD
     Route: 048
     Dates: start: 20130530

REACTIONS (11)
  - Fear [Unknown]
  - Spinal pain [Unknown]
  - Diarrhoea [Recovering/Resolving]
  - Pyrexia [Recovering/Resolving]
  - Gene mutation identification test positive [Recovering/Resolving]
  - Myalgia [Recovering/Resolving]
  - Anaemia [Unknown]
  - Oedema peripheral [Recovering/Resolving]
  - Intervertebral disc protrusion [Unknown]
  - Chikungunya virus infection [Recovered/Resolved]
  - Infection [Recovering/Resolving]

NARRATIVE: CASE EVENT DATE: 20140801
